FAERS Safety Report 6453934-0 (Version None)
Quarter: 2009Q4

REPORT INFORMATION
  Report Type: 
  Country: None (occurrence: None)
  Receive Date: 20091117
  Receipt Date: 20091105
  Transmission Date: 20100525
  Serious: Yes (Life-Threatening, Hospitalization)
  Sender: FDA-Public Use
  Company Number: A-US2009-28168

PATIENT
  Age: 54 Year
  Sex: Male

DRUGS (3)
  1. VENTAVIS [Suspect]
     Indication: PULMONARY ARTERIAL HYPERTENSION
     Dosage: 2 DOSES, RESPIRATORY
     Route: 055
     Dates: start: 20091005, end: 20091005
  2. SILDENAFIL [Concomitant]
  3. WARFARIN SODIUM [Concomitant]

REACTIONS (7)
  - BRONCHITIS [None]
  - DIARRHOEA [None]
  - HEART RATE IRREGULAR [None]
  - NAUSEA [None]
  - PNEUMONIA [None]
  - PNEUMONITIS [None]
  - PYREXIA [None]
